FAERS Safety Report 6324647-0 (Version None)
Quarter: 2009Q3

REPORT INFORMATION
  Report Type: 
  Country: None (occurrence: None)
  Receive Date: 20090824
  Receipt Date: 20090507
  Transmission Date: 20100115
  Serious: No
  Sender: FDA-Public Use
  Company Number: US-ABBOTT-09P-163-0572440-00

PATIENT
  Sex: Male
  Weight: 90.8 kg

DRUGS (7)
  1. NIASPAN [Suspect]
     Indication: LOW DENSITY LIPOPROTEIN INCREASED
     Route: 048
     Dates: start: 20090405
  2. NIASPAN [Suspect]
     Indication: HIGH DENSITY LIPOPROTEIN DECREASED
  3. LOTREL [Concomitant]
     Indication: HYPERTENSION
     Dosage: 10 MG/40 MG, 1 IN 1 DAY
     Route: 048
  4. VYTORIN [Concomitant]
     Indication: BLOOD CHOLESTEROL INCREASED
     Dosage: 10/40 MG, 1 IN 1 DAY
     Route: 048
  5. FISH OIL [Concomitant]
     Indication: BLOOD CHOLESTEROL INCREASED
     Route: 048
  6. MULTI-VITAMIN [Concomitant]
     Indication: MEDICAL DIET
     Route: 048
  7. ALEVE [Concomitant]
     Indication: PAIN
     Route: 048

REACTIONS (1)
  - FLUSHING [None]
